FAERS Safety Report 7269310-7 (Version None)
Quarter: 2011Q1

REPORT INFORMATION
  Report Type: 
  Country: None (occurrence: None)
  Receive Date: 20110124
  Receipt Date: 20110117
  Transmission Date: 20110831
  Serious: Yes (Hospitalization)
  Sender: FDA-Public Use
  Company Number: 1000018093

PATIENT
  Age: 72 Year
  Sex: Female

DRUGS (8)
  1. COTRIATE (RAMIPRIL, HYDROCHLOROTHIAZIDE) [Suspect]
     Dosage: ORAL
     Route: 048
  2. ACETAMINOPHEN AND TRAMADOL HCL [Suspect]
     Dosage: ORAL
     Route: 048
     Dates: end: 20101208
  3. ACETAMINOPHEN AND TRAMADOL HCL [Suspect]
     Dosage: ORAL
     Route: 048
     Dates: start: 20101201, end: 20101201
  4. MOPRAL (OMEPRAZOLE) [Suspect]
     Dosage: ORAL
     Route: 048
  5. RIVOTRIL (CLONAZEPAM) [Suspect]
     Dosage: ORAL
     Route: 048
     Dates: start: 20101201, end: 20101201
  6. RIVOTRIL (CLONAZEPAM) [Suspect]
     Dosage: ORAL
     Route: 048
     Dates: end: 20101208
  7. NEBIVOLOL (NEBIVOLOL HYDROCHLORIDE) [Suspect]
     Dosage: 5 MG (5 MG, 1 IN 1 D), ORAL
     Route: 048
     Dates: end: 20101208
  8. NEBIVOLOL (NEBIVOLOL HYDROCHLORIDE) [Suspect]
     Dosage: 5 MG (5 MG, 1 IN 1 D), ORAL
     Route: 048
     Dates: start: 20101201, end: 20101201

REACTIONS (7)
  - BLOOD POTASSIUM DECREASED [None]
  - HEPATITIS ACUTE [None]
  - BRADYCARDIA [None]
  - RENAL FAILURE ACUTE [None]
  - MULTIPLE DRUG OVERDOSE INTENTIONAL [None]
  - SOMNOLENCE [None]
  - POISONING DELIBERATE [None]
